FAERS Safety Report 7056834-0 (Version None)
Quarter: 2010Q4

REPORT INFORMATION
  Report Type: 
  Country: None (occurrence: None)
  Receive Date: 20101022
  Receipt Date: 20100526
  Transmission Date: 20110411
  Serious: No
  Sender: FDA-Public Use
  Company Number: A0861459A

PATIENT
  Sex: Female

DRUGS (1)
  1. DUAC [Suspect]
     Indication: PRODUCT USED FOR UNKNOWN INDICATION
     Route: 061

REACTIONS (2)
  - APPLICATION SITE PRURITUS [None]
  - EXPIRED DRUG ADMINISTERED [None]
